FAERS Safety Report 11340191 (Version 2)
Quarter: 2015Q3

REPORT INFORMATION
  Report Type: Spontaneous
  Country: AT (occurrence: AT)
  Receive Date: 20150805
  Receipt Date: 20150805
  Transmission Date: 20151125
  Serious: Yes (Hospitalization, Other)
  Sender: FDA-Public Use
  Company Number: AT-WATSON-2015-16229

PATIENT
  Sex: Male

DRUGS (7)
  1. OLANZAPINE (UNKNOWN) [Suspect]
     Active Substance: OLANZAPINE
     Indication: SCHIZOPHRENIA, PARANOID TYPE
     Dosage: UP TO 20 MG DAILY
     Route: 065
     Dates: start: 200502
  2. CLOZAPINE (UNKNOWN) [Suspect]
     Active Substance: CLOZAPINE
     Indication: SCHIZOPHRENIA, PARANOID TYPE
     Dosage: UP TO 250 MG/DAY
     Route: 065
     Dates: start: 200506
  3. CLOZAPINE (UNKNOWN) [Suspect]
     Active Substance: CLOZAPINE
     Dosage: 200 MG, DAILY
     Route: 065
     Dates: start: 200704
  4. RISPERIDONE (UNKNOWN) [Suspect]
     Active Substance: RISPERIDONE
     Indication: SCHIZOPHRENIA, PARANOID TYPE
     Dosage: UP TO 8 MG/D
     Route: 048
  5. QUETIAPINE (UNKNOWN) [Suspect]
     Active Substance: QUETIAPINE
     Indication: SCHIZOPHRENIA, PARANOID TYPE
     Dosage: UP TO 600 MG DAILY
     Route: 065
  6. ZIPRASIDONE (UNKNOWN) [Suspect]
     Active Substance: ZIPRASIDONE
     Indication: SCHIZOPHRENIA, PARANOID TYPE
     Dosage: UP TO 80 MG/D
     Route: 048
  7. CLOZAPINE (UNKNOWN) [Suspect]
     Active Substance: CLOZAPINE
     Dosage: UP TO 150 MG/DAY
     Route: 065
     Dates: start: 201002

REACTIONS (6)
  - Neutropenia [Unknown]
  - Dystonia [Unknown]
  - Hunger [Unknown]
  - Orthostatic hypotension [Unknown]
  - Tremor [Unknown]
  - Sedation [Unknown]

NARRATIVE: CASE EVENT DATE: 200502
